FAERS Safety Report 10387046 (Version 2)
Quarter: 2014Q3

REPORT INFORMATION
  Report Type: Other
  Country: GB (occurrence: GB)
  Receive Date: 20140815
  Receipt Date: 20140815
  Transmission Date: 20150326
  Serious: Yes (Death, Other)
  Sender: FDA-Public Use
  Company Number: GB-MYLANLABS-2014S1007765

PATIENT
  Age: 61 Year
  Sex: Male

DRUGS (12)
  1. GABAPENTIN. [Concomitant]
     Active Substance: GABAPENTIN
     Dosage: 800 MG, TID
     Route: 048
  2. SIMVASTATIN. [Concomitant]
     Active Substance: SIMVASTATIN
     Dosage: 40 UNK,QD
     Route: 048
  3. VITAMIN B [Concomitant]
     Active Substance: VITAMIN B
     Dosage: 1 UNK,QD
     Route: 048
  4. PARACETAMOL [Concomitant]
     Active Substance: ACETAMINOPHEN
     Indication: PAIN
     Dosage: 1 G, QID
     Route: 048
  5. CITALOPRAM [Interacting]
     Active Substance: CITALOPRAM HYDROBROMIDE
     Indication: DEPRESSION
  6. CODEINE PHOSPHATE [Suspect]
     Active Substance: CODEINE PHOSPHATE
     Indication: PAIN
     Dosage: UNSPECIFIED OVERDOSE
     Route: 048
     Dates: start: 20120810, end: 20120810
  7. QUININE SULPHATE [Suspect]
     Active Substance: QUININE SULFATE
     Indication: ANALGESIC THERAPY
     Dosage: 200 MG, QD
     Route: 048
  8. AMITRIPTYLINE [Suspect]
     Active Substance: AMITRIPTYLINE
     Dosage: TAKEN AT NIGHT
     Route: 048
  9. CODEINE PHOSPHATE [Suspect]
     Active Substance: CODEINE PHOSPHATE
     Dosage: 60 MG, QID
     Dates: end: 20120809
  10. CITALOPRAM [Suspect]
     Active Substance: CITALOPRAM HYDROBROMIDE
     Indication: PANIC DISORDER
     Dosage: 60 MG,QD
     Route: 048
     Dates: start: 2002
  11. DIAZEPAM. [Concomitant]
     Active Substance: DIAZEPAM
     Dosage: 10 UNK,QID
     Route: 048
  12. SILDENAFIL [Concomitant]
     Active Substance: SILDENAFIL
     Dosage: HALF TO ONE TABLET ONE HOUR BEFORE PLANNED ACTIVITY, AS REQUIRED

REACTIONS (5)
  - Cardiac arrest [Fatal]
  - Overdose [Unknown]
  - Drug interaction [Fatal]
  - Syncope [Fatal]
  - Prescribed overdose [Unknown]

NARRATIVE: CASE EVENT DATE: 20120810
